FAERS Safety Report 22366280 (Version 1)
Quarter: 2023Q2

REPORT INFORMATION
  Report Type: Spontaneous
  Country: US (occurrence: US)
  Receive Date: 20230525
  Receipt Date: 20230525
  Transmission Date: 20230721
  Serious: Yes (Other)
  Sender: FDA-Public Use
  Company Number: US-SUN PHARMACEUTICAL INDUSTRIES LTD-2023R1-389585

PATIENT
  Age: 26 Year
  Sex: Female

DRUGS (4)
  1. METHIMAZOLE [Suspect]
     Active Substance: METHIMAZOLE
     Indication: Graves^ disease
     Dosage: UNK
     Route: 065
  2. PROPRANOLOL [Suspect]
     Active Substance: PROPRANOLOL HYDROCHLORIDE
     Indication: Graves^ disease
     Dosage: UNK
     Route: 065
  3. CHOLESTYRAMINE [Suspect]
     Active Substance: CHOLESTYRAMINE
     Indication: Hyperthyroidism
     Dosage: UNK
     Route: 065
  4. IODINE [Suspect]
     Active Substance: IODINE
     Indication: Hyperthyroidism
     Dosage: UNK
     Route: 065

REACTIONS (3)
  - Teratogenicity [Unknown]
  - Premature delivery [Unknown]
  - Exposure during pregnancy [Unknown]
